FAERS Safety Report 4351000-1 (Version None)
Quarter: 2004Q2

REPORT INFORMATION
  Report Type: 
  Country: None (occurrence: None)
  Receive Date: 20040428
  Receipt Date: 20040415
  Transmission Date: 20050107
  Serious: Yes (Other)
  Sender: FDA-Public Use
  Company Number: 2004024723

PATIENT
  Age: 53 Year
  Sex: Male
  Weight: 72.5755 kg

DRUGS (4)
  1. NEURONTIN [Suspect]
     Indication: EPILEPSY
     Dosage: 1800 MG, (TID), ORAL
     Route: 048
     Dates: start: 20020801
  2. LEVETIRACETAM [Concomitant]
  3. DIAZEPAM [Concomitant]
  4. CODEINE SULFATE [Concomitant]

REACTIONS (3)
  - AMNESIA [None]
  - HEPATITIS C [None]
  - SPEECH DISORDER [None]
